FAERS Safety Report 12823667 (Version 1)
Quarter: 2016Q4

REPORT INFORMATION
  Report Type: Spontaneous
  Country: IN (occurrence: IN)
  Receive Date: 20161006
  Receipt Date: 20161006
  Transmission Date: 20170207
  Serious: Yes (Life-Threatening)
  Sender: FDA-Public Use
  Company Number: IN-FRESENIUS KABI-FK201607401

PATIENT
  Age: 36 Year
  Sex: Male

DRUGS (3)
  1. ONDANSETRON (MANUFACTURER UNKNOWN) [Interacting]
     Active Substance: ONDANSETRON
     Indication: PRODUCT USED FOR UNKNOWN INDICATION
     Route: 065
  2. AMITRIPTYLINE [Suspect]
     Active Substance: AMITRIPTYLINE
     Indication: MIGRAINE
     Route: 065
  3. VALPROATE [Suspect]
     Active Substance: VALPROIC ACID
     Indication: MIGRAINE
     Route: 065

REACTIONS (4)
  - Serotonin syndrome [Recovered/Resolved]
  - Product use issue [Unknown]
  - Drug interaction [Recovered/Resolved]
  - Encephalopathy [Recovered/Resolved]
